FAERS Safety Report 17265915 (Version 2)
Quarter: 2020Q2

REPORT INFORMATION
  Report Type: Spontaneous
  Country: US (occurrence: US)
  Receive Date: 20200114
  Receipt Date: 20200519
  Transmission Date: 20200713
  Serious: No
  Sender: FDA-Public Use
  Company Number: US-GILEAD-2020-0445887

PATIENT
  Sex: Male

DRUGS (2)
  1. ATRIPLA [Suspect]
     Active Substance: EFAVIRENZ\EMTRICITABINE\TENOFOVIR DISOPROXIL FUMARATE
     Indication: HIV INFECTION
     Dosage: UNK
     Route: 048
     Dates: start: 2008, end: 2016
  2. TRUVADA [Suspect]
     Active Substance: EMTRICITABINE\TENOFOVIR DISOPROXIL FUMARATE
     Indication: HIV INFECTION
     Dosage: UNK
     Route: 048
     Dates: start: 2008, end: 2008

REACTIONS (7)
  - Anhedonia [Not Recovered/Not Resolved]
  - Pain [Not Recovered/Not Resolved]
  - Economic problem [Not Recovered/Not Resolved]
  - Emotional distress [Not Recovered/Not Resolved]
  - Bone density decreased [Unknown]
  - Anxiety [Not Recovered/Not Resolved]
  - Osteopenia [Unknown]
